FAERS Safety Report 9095498 (Version 1)
Quarter: 2013Q1

REPORT INFORMATION
  Report Type: Report from Study
  Country: US (occurrence: US)
  Receive Date: 20130131
  Receipt Date: 20130131
  Transmission Date: 20140127
  Serious: Yes (Hospitalization, Other)
  Sender: FDA-Public Use
  Company Number: US-ABBOTT-12P-163-1007488-00

PATIENT
  Age: 53 Year
  Sex: 0

DRUGS (9)
  1. HUMIRA PEN [Suspect]
     Indication: RHEUMATOID ARTHRITIS
     Dosage: EVERY FRIDAY
  2. REMICADE [Suspect]
     Indication: RHEUMATOID ARTHRITIS
  3. METHOTREXATE [Concomitant]
     Indication: PRODUCT USED FOR UNKNOWN INDICATION
     Dosage: EVERY FRIDAY
  4. FOLIC ACID [Concomitant]
     Indication: PRODUCT USED FOR UNKNOWN INDICATION
  5. SIMVASTATIN [Concomitant]
     Indication: HYPERTENSION
  6. FISH OIL [Concomitant]
     Indication: SARCOIDOSIS
  7. AMLODIPINE [Concomitant]
     Indication: HYPERTENSION
     Dates: start: 201202
  8. DARVON [Concomitant]
     Indication: BLOOD CHOLESTEROL INCREASED
  9. BAYER ASPIRIN [Concomitant]
     Indication: PROPHYLAXIS
     Dosage: DAILY

REACTIONS (4)
  - Atrial fibrillation [Not Recovered/Not Resolved]
  - Drug effect decreased [Unknown]
  - Bone pain [Unknown]
  - Finger deformity [Unknown]
